FAERS Safety Report 7525277-5 (Version None)
Quarter: 2011Q2

REPORT INFORMATION
  Report Type: 
  Country: None (occurrence: None)
  Receive Date: 20110606
  Receipt Date: 20110601
  Transmission Date: 20111010
  Serious: Yes (Hospitalization)
  Sender: FDA-Public Use
  Company Number: JP-BRACCO-004587

PATIENT
  Sex: Male
  Weight: 62 kg

DRUGS (3)
  1. IOPAMIDOL [Suspect]
     Indication: COMPUTERISED TOMOGRAM
     Dosage: AT A RATE OF 3 ML/SEC
     Route: 042
     Dates: start: 20101207, end: 20101207
  2. URSO 250 [Concomitant]
     Indication: HEPATIC FUNCTION ABNORMAL
     Route: 048
     Dates: start: 20100903
  3. INDERAL [Concomitant]
     Indication: HYPERTENSION
     Route: 048
     Dates: start: 20100507

REACTIONS (7)
  - URINARY INCONTINENCE [None]
  - VOMITING [None]
  - BLOOD PRESSURE DECREASED [None]
  - COLD SWEAT [None]
  - FEELING ABNORMAL [None]
  - OXYGEN SATURATION DECREASED [None]
  - NAUSEA [None]
